FAERS Safety Report 15587840 (Version 4)
Quarter: 2020Q3

REPORT INFORMATION
  Report Type: Spontaneous
  Country: US (occurrence: US)
  Receive Date: 20181105
  Receipt Date: 20200812
  Transmission Date: 20201102
  Serious: No
  Sender: FDA-Public Use
  Company Number: US-PFIZER INC-2018439891

PATIENT
  Age: 21 Year
  Sex: Female
  Weight: 61.23 kg

DRUGS (4)
  1. GENOTROPIN MQ [Suspect]
     Active Substance: SOMATROPIN
     Dosage: 1 MG, DAILY ( 1MG DAILY BY INJECTION)
  2. GENOTROPIN MQ [Suspect]
     Active Substance: SOMATROPIN
     Dosage: 0.8 MG, 1X/DAY(ONCE A DAY AT NIGHT)
     Dates: end: 20181016
  3. VITAMIN B2 [Concomitant]
     Active Substance: RIBOFLAVIN
     Indication: MIGRAINE
     Dosage: UNK, 1X/DAY
  4. VITAMIN D [COLECALCIFEROL] [Concomitant]
     Active Substance: CHOLECALCIFEROL
     Indication: VITAMIN D DEFICIENCY
     Dosage: UNK, 1X/DAY

REACTIONS (3)
  - Fatigue [Unknown]
  - Headache [Unknown]
  - Product dose omission issue [Not Recovered/Not Resolved]
